FAERS Safety Report 8895243 (Version 1)
Quarter: 2012Q4

REPORT INFORMATION
  Report Type: 
  Country: US (occurrence: US)
  Receive Date: 20121107
  Receipt Date: 20121107
  Transmission Date: 20130627
  Serious: No
  Sender: FDA-Public Use
  Company Number: US-AMGEN-USASP2011056091

PATIENT
  Age: 63 Year

DRUGS (8)
  1. ENBREL [Suspect]
     Indication: PRODUCT USED FOR UNKNOWN INDICATION
     Dosage: 25 mg, 2 times/wk
  2. RESTASIS [Concomitant]
     Dosage: 0.05 %, UNK
  3. FLUOXETINE [Concomitant]
     Dosage: 10 mg, UNK
  4. LISINOPRIL [Concomitant]
     Dosage: 10 mg, UNK
  5. SIMVASTATIN [Concomitant]
     Dosage: 10 mg, UNK
  6. OXYBUTYNIN [Concomitant]
     Dosage: 5 mg, UNK
  7. NEXIUM [Concomitant]
     Dosage: 20 mg, UNK
  8. VITAMIN D [Concomitant]

REACTIONS (1)
  - Paraesthesia [Unknown]
